FAERS Safety Report 9999556 (Version 1)
Quarter: 2014Q1

REPORT INFORMATION
  Report Type: Spontaneous
  Country: US (occurrence: None)
  Receive Date: 20140228
  Receipt Date: 20140228
  Transmission Date: 20141002
  Serious: Yes (Hospitalization)
  Sender: FDA-Public Use
  Company Number: OHEH2013US022370

PATIENT
  Age: 52 Year
  Sex: Female

DRUGS (2)
  1. TEGRETOL [Suspect]
     Dosage: UNK UKN, UNK
  2. COPAXONE [Suspect]
     Indication: MULTIPLE SCLEROSIS
     Dosage: UNK UKN , UNK
     Dates: start: 20130820, end: 20130824

REACTIONS (3)
  - Drug hypersensitivity [None]
  - Body temperature increased [None]
  - Rash [None]
